FAERS Safety Report 20727512 (Version 1)
Quarter: 2022Q2

REPORT INFORMATION
  Report Type: Other
  Country: US (occurrence: None)
  Receive Date: 20220419
  Receipt Date: 20220419
  Transmission Date: 20220720
  Serious: Yes (Other)
  Sender: FDA-Public Use
  Company Number: US-ROCHE-2789965

PATIENT
  Age: 16 Year
  Sex: Female

DRUGS (7)
  1. AVASTIN [Suspect]
     Active Substance: BEVACIZUMAB
     Indication: Rhabdomyosarcoma
     Route: 065
  2. VINORELBINE [Suspect]
     Active Substance: VINORELBINE TARTRATE
     Indication: Rhabdomyosarcoma
     Route: 065
  3. CYCLOPHOSPHAMIDE [Suspect]
     Active Substance: CYCLOPHOSPHAMIDE
     Indication: Rhabdomyosarcoma
     Route: 048
  4. PAZOPANIB [Concomitant]
     Active Substance: PAZOPANIB
     Indication: Rhabdomyosarcoma
     Route: 065
  5. LENVATINIB [Concomitant]
     Active Substance: LENVATINIB
     Indication: Rhabdomyosarcoma
  6. EVEROLIMUS [Concomitant]
     Active Substance: EVEROLIMUS
     Indication: Rhabdomyosarcoma
  7. DOXORUBICIN [Concomitant]
     Active Substance: DOXORUBICIN
     Indication: Rhabdomyosarcoma

REACTIONS (2)
  - Neutropenia [Unknown]
  - Haematuria [Unknown]
